FAERS Safety Report 6865329-6 (Version None)
Quarter: 2010Q3

REPORT INFORMATION
  Report Type: 
  Country: None (occurrence: None)
  Receive Date: 20100721
  Receipt Date: 20100713
  Transmission Date: 20110219
  Serious: Yes (Hospitalization)
  Sender: FDA-Public Use
  Company Number: NL-AMGEN-QUU425155

PATIENT
  Age: 41 Year
  Sex: Female

DRUGS (3)
  1. ENBREL [Suspect]
     Indication: PSORIATIC ARTHROPATHY
     Route: 058
     Dates: start: 20090701, end: 20100601
  2. ARCOXIA [Concomitant]
  3. THYRAX [Concomitant]

REACTIONS (5)
  - APPENDICECTOMY [None]
  - BORDERLINE OVARIAN TUMOUR [None]
  - HYSTERECTOMY [None]
  - OOPHORECTOMY [None]
  - SURGERY [None]
